FAERS Safety Report 5815707-9 (Version None)
Quarter: 2008Q3

REPORT INFORMATION
  Report Type: 
  Country: None (occurrence: None)
  Receive Date: 20080721
  Receipt Date: 20080711
  Transmission Date: 20090109
  Serious: Yes (Hospitalization)
  Sender: FDA-Public Use
  Company Number: SE-ELI_LILLY_AND_COMPANY-SE200807002259

PATIENT
  Sex: Female

DRUGS (1)
  1. ZYPREXA [Suspect]
     Dosage: UNK, UNKNOWN
     Route: 065
     Dates: end: 20080518

REACTIONS (1)
  - ELECTROCARDIOGRAM QT PROLONGED [None]
